FAERS Safety Report 10501649 (Version 1)
Quarter: 2014Q4

REPORT INFORMATION
  Report Type: Spontaneous
  Country: US (occurrence: None)
  Receive Date: 20141006
  Receipt Date: 20141006
  Transmission Date: 20150528
  Serious: No
  Sender: FDA-Public Use
  Company Number: None

PATIENT
  Age: 44 Year
  Sex: Female
  Weight: 117.94 kg

DRUGS (1)
  1. XARELTO [Suspect]
     Active Substance: RIVAROXABAN
     Indication: FACTOR II MUTATION
     Dosage: 1, ONCE DAILY, TAKEN BY MOUTH
     Route: 048
     Dates: start: 20140902, end: 20141003

REACTIONS (1)
  - Alopecia [None]

NARRATIVE: CASE EVENT DATE: 20141004
